FAERS Safety Report 8188384-2 (Version None)
Quarter: 2012Q1

REPORT INFORMATION
  Report Type: 
  Country: None (occurrence: None)
  Receive Date: 20120306
  Receipt Date: 20120222
  Transmission Date: 20120608
  Serious: Yes (Hospitalization, Other)
  Sender: FDA-Public Use
  Company Number: PHHY2012EC019055

PATIENT
  Sex: Female

DRUGS (1)
  1. DIOVAN [Suspect]
     Indication: HYPERTENSION
     Dosage: 160 MG, DAILY
     Route: 048
     Dates: start: 20100101

REACTIONS (6)
  - GANGRENE [None]
  - LIMB INJURY [None]
  - SKIN DEPIGMENTATION [None]
  - FOOT FRACTURE [None]
  - LOCAL SWELLING [None]
  - PAIN [None]
